FAERS Safety Report 11622206 (Version 1)
Quarter: 2015Q4

REPORT INFORMATION
  Report Type: Spontaneous
  Country: US (occurrence: None)
  Receive Date: 20151008
  Receipt Date: 20151008
  Transmission Date: 20160304
  Serious: Yes (Other)
  Sender: FDA-Public Use
  Company Number: 2015AMY00069

PATIENT
  Age: 22 Year
  Sex: Female

DRUGS (1)
  1. CLEAR.NOW SKINCARE SYSTEM (SALICYLIC ACID) LOTION [Suspect]
     Active Substance: SALICYLIC ACID
     Indication: ACNE
     Route: 061
     Dates: start: 20150814, end: 20150814

REACTIONS (10)
  - Vomiting [None]
  - Hypersensitivity [None]
  - Malaise [None]
  - Insomnia [None]
  - Rash [None]
  - Throat tightness [None]
  - Dyspnoea [None]
  - Foreign body [None]
  - Anaphylactic reaction [None]
  - Throat irritation [None]

NARRATIVE: CASE EVENT DATE: 20150814
